FAERS Safety Report 6308646-0 (Version None)
Quarter: 2009Q3

REPORT INFORMATION
  Report Type: 
  Country: None (occurrence: None)
  Receive Date: 20090811
  Receipt Date: 20090623
  Transmission Date: 20100115
  Serious: No
  Sender: FDA-Public Use
  Company Number: 1000006735

PATIENT
  Age: 22 Year
  Sex: Female

DRUGS (2)
  1. SAVELLA [Suspect]
     Indication: FIBROMYALGIA
  2. CYMBALTA [Suspect]

REACTIONS (1)
  - DRUG WITHDRAWAL SYNDROME [None]
